FAERS Safety Report 7582007-9 (Version None)
Quarter: 2011Q2

REPORT INFORMATION
  Report Type: 
  Country: None (occurrence: None)
  Receive Date: 20110630
  Receipt Date: 20110620
  Transmission Date: 20111010
  Serious: No
  Sender: FDA-Public Use
  Company Number: US-BIOGENIDEC-2010BI025114

PATIENT
  Sex: Female

DRUGS (1)
  1. TYSABRI [Suspect]
     Indication: MULTIPLE SCLEROSIS
     Route: 042
     Dates: start: 20090102, end: 20100702

REACTIONS (8)
  - BRONCHITIS CHRONIC [None]
  - UPPER RESPIRATORY TRACT INFECTION [None]
  - COGNITIVE DISORDER [None]
  - IMMUNE SYSTEM DISORDER [None]
  - ESCHERICHIA INFECTION [None]
  - ESCHERICHIA URINARY TRACT INFECTION [None]
  - URINARY TRACT INFECTION [None]
  - INFECTION [None]
